FAERS Safety Report 10399053 (Version 1)
Quarter: 2014Q3

REPORT INFORMATION
  Report Type: Spontaneous
  Country: US (occurrence: US)
  Receive Date: 20140821
  Receipt Date: 20140821
  Transmission Date: 20150326
  Serious: Yes (Hospitalization)
  Sender: FDA-Public Use
  Company Number: US-ABBVIE-14P-163-1272845-00

PATIENT
  Age: 62 Year
  Sex: Male

DRUGS (1)
  1. NORVIR [Suspect]
     Active Substance: RITONAVIR
     Indication: HIV INFECTION

REACTIONS (2)
  - Sepsis [Not Recovered/Not Resolved]
  - HIV infection [Not Recovered/Not Resolved]

NARRATIVE: CASE EVENT DATE: 201408
